FAERS Safety Report 8928952 (Version 3)
Quarter: 2013Q3

REPORT INFORMATION
  Report Type: Report from Study
  Country: JP (occurrence: JP)
  Receive Date: 20121127
  Receipt Date: 20130911
  Transmission Date: 20140515
  Serious: Yes (Other)
  Sender: FDA-Public Use
  Company Number: JP-VERTEX PHARMACEUTICAL INC.-2012-025073

PATIENT
  Age: 64 Year
  Sex: Male

DRUGS (19)
  1. VX-950 (TELAPREVIR) [Suspect]
     Indication: CHRONIC HEPATITIS C
     Dosage: 2250 MG, QD
     Route: 048
     Dates: start: 20120403, end: 20120430
  2. VX-950 (TELAPREVIR) [Suspect]
     Dosage: 1500 MG, QD
     Route: 048
     Dates: start: 20120501, end: 20120625
  3. RIBAVIRIN [Suspect]
     Indication: CHRONIC HEPATITIS C
     Dosage: 800 MG, QD
     Route: 048
     Dates: start: 20120403, end: 20120416
  4. RIBAVIRIN [Suspect]
     Dosage: 400 MG, QD
     Route: 048
     Dates: start: 20120417, end: 20120514
  5. RIBAVIRIN [Suspect]
     Dosage: 200 MG, QD
     Route: 048
     Dates: start: 20120515, end: 20120910
  6. PEGINTERFERON ALFA-2B [Suspect]
     Indication: CHRONIC HEPATITIS C
     Dosage: 1.35 ?G/KG, QW
     Route: 058
     Dates: start: 20120403, end: 20120514
  7. PEGINTERFERON ALFA-2B [Suspect]
     Dosage: 1.08 ?G/KG, QW
     Route: 058
     Dates: start: 20120515, end: 20120911
  8. PREDONINE [Suspect]
     Indication: ADVERSE EVENT
     Dosage: 30 MG, QD
     Route: 048
     Dates: start: 20120529, end: 20120611
  9. PREDONINE [Suspect]
     Dosage: 20 MG, QD
     Route: 048
     Dates: start: 20120612, end: 20120618
  10. PREDONINE [Suspect]
     Dosage: 10 MG, QD
     Route: 048
     Dates: start: 20120619, end: 20120625
  11. LOXOPROFEN [Concomitant]
     Dosage: 60 MG, PRN
     Route: 048
     Dates: start: 20120403, end: 20120508
  12. LOXOPROFEN [Concomitant]
     Dosage: 60 MG, QD
     Route: 048
     Dates: start: 20120731
  13. LENDORMIN DAINIPPO [Concomitant]
     Dosage: 0.25 MG, QD
     Route: 048
     Dates: start: 20120403, end: 20120430
  14. RIKKUNSHITO [Concomitant]
     Dosage: 7.5 G, QD
     Route: 048
     Dates: start: 20120408
  15. ALLELOCK [Concomitant]
     Dosage: 10 MG, QD
     Route: 048
     Dates: start: 20120409, end: 20120424
  16. DEPAS [Concomitant]
     Dosage: 0.5 MG, QD
     Route: 048
  17. RHYTHMY [Concomitant]
     Dosage: 1 MG, QD
     Route: 048
  18. PARIET [Concomitant]
     Dosage: 10 MG, QD
     Route: 048
     Dates: start: 20120529, end: 20120625
  19. DOMPERIDONE [Concomitant]
     Dosage: 30 MG, QD
     Route: 048
     Dates: start: 20120403, end: 20120604

REACTIONS (1)
  - Drug eruption [Recovered/Resolved]
